FAERS Safety Report 23130784 (Version 1)
Quarter: 2023Q4

REPORT INFORMATION
  Report Type: Spontaneous
  Country: US (occurrence: None)
  Receive Date: 20231030
  Receipt Date: 20231030
  Transmission Date: 20240109
  Serious: No
  Sender: FDA-Public Use
  Company Number: None

PATIENT
  Age: 74 Year
  Sex: Male
  Weight: 69.93 kg

DRUGS (2)
  1. TECENTRIQ [Suspect]
     Active Substance: ATEZOLIZUMAB
     Dosage: OTHER FREQUENCY : Q3WK;?
     Route: 042
  2. Zirabev [Concomitant]

REACTIONS (1)
  - Hair colour changes [None]

NARRATIVE: CASE EVENT DATE: 20231030
